FAERS Safety Report 8992902 (Version 1)
Quarter: 2013Q1

REPORT INFORMATION
  Report Type: Spontaneous
  Country: US (occurrence: US)
  Receive Date: 20130102
  Receipt Date: 20130102
  Transmission Date: 20140127
  Serious: Yes (Hospitalization, Other)
  Sender: FDA-Public Use
  Company Number: PHEH2012US017488

PATIENT
  Age: 66 None
  Sex: Male
  Weight: 132.6 kg

DRUGS (2)
  1. EXJADE [Suspect]
     Indication: IRON OVERLOAD
     Dosage: 1000 MG QD
     Route: 048
     Dates: start: 20120214, end: 20120807
  2. EXJADE [Suspect]
     Indication: SERUM FERRITIN INCREASED

REACTIONS (3)
  - Abdominal pain [Recovered/Resolved]
  - Constipation [Recovered/Resolved]
  - Abdominal discomfort [Recovering/Resolving]
